FAERS Safety Report 8916232 (Version 2)
Quarter: 2012Q4

REPORT INFORMATION
  Report Type: 
  Country: JP (occurrence: JP)
  Receive Date: 20121120
  Receipt Date: 20121212
  Transmission Date: 20130627
  Serious: Yes (Hospitalization)
  Sender: FDA-Public Use
  Company Number: JP-GLAXOSMITHKLINE-B0845476A

PATIENT
  Age: 68 None
  Sex: Female
  Weight: 70 kg

DRUGS (11)
  1. VALTREX [Suspect]
     Indication: HERPES ZOSTER
     Dosage: 1000MG Three times per day
     Route: 048
     Dates: start: 20121111, end: 20121112
  2. LOXONIN [Concomitant]
     Route: 062
     Dates: start: 20121001, end: 20121113
  3. CHINESE MEDICINE [Concomitant]
     Route: 048
     Dates: start: 20121001, end: 20121113
  4. MUCOSTA [Concomitant]
     Route: 065
     Dates: start: 20121111
  5. DIOVAN [Concomitant]
     Route: 048
     Dates: start: 20121111
  6. NORVASC [Concomitant]
     Route: 048
     Dates: start: 20121111
  7. BLOPRESS [Concomitant]
     Dosage: 4MG Per day
     Route: 048
  8. ZYLORIC [Concomitant]
     Dosage: 100MG Per day
     Route: 048
  9. SODIUM RABEPRAZOLE [Concomitant]
     Dosage: 10MG Per day
     Route: 048
  10. AMLODIPINE [Concomitant]
     Dosage: 2.5MG Per day
     Route: 048
  11. ATORVASTATIN [Concomitant]
     Dosage: 10MG Per day
     Route: 048

REACTIONS (5)
  - Renal failure acute [Recovered/Resolved]
  - Creatinine renal clearance abnormal [Recovered/Resolved]
  - Abdominal pain upper [Unknown]
  - Oliguria [Unknown]
  - Blood creatinine increased [Unknown]
